FAERS Safety Report 8301324 (Version 2)
Quarter: 2015Q2

REPORT INFORMATION
  Report Type: Spontaneous
  Country: US (occurrence: US)
  Receive Date: 20111219
  Receipt Date: 20150528
  Transmission Date: 20150821
  Serious: No
  Sender: FDA-Public Use
  Company Number: US-ASTRAZENECA-2011SE16479

PATIENT
  Age: 46 Year
  Sex: Female
  Weight: 125.2 kg

DRUGS (19)
  1. ADVAIR HFA [Concomitant]
     Active Substance: FLUTICASONE PROPIONATE\SALMETEROL XINAFOATE
  2. OMEPRAZOLE. [Suspect]
     Active Substance: OMEPRAZOLE
     Indication: GASTROOESOPHAGEAL REFLUX DISEASE
     Route: 048
  3. VERAMYST [Concomitant]
     Active Substance: FLUTICASONE FUROATE
     Indication: RHINITIS ALLERGIC
  4. SINGULAIR [Concomitant]
     Active Substance: MONTELUKAST SODIUM
  5. VENTOLIN HFA [Concomitant]
     Active Substance: ALBUTEROL SULFATE
     Indication: DYSPNOEA
  6. LORATADINE. [Concomitant]
     Active Substance: LORATADINE
  7. NEXIUM [Suspect]
     Active Substance: ESOMEPRAZOLE MAGNESIUM
     Indication: GASTROOESOPHAGEAL REFLUX DISEASE
     Route: 048
     Dates: start: 2010, end: 20150507
  8. GLIMEPIRIDE. [Concomitant]
     Active Substance: GLIMEPIRIDE
  9. LIPITOR [Concomitant]
     Active Substance: ATORVASTATIN CALCIUM
  10. AMLODIPINE [Concomitant]
     Active Substance: AMLODIPINE BESYLATE
     Indication: BLOOD PRESSURE
  11. CRESTOR [Suspect]
     Active Substance: ROSUVASTATIN CALCIUM
     Route: 048
  12. OMEPRAZOLE. [Suspect]
     Active Substance: OMEPRAZOLE
     Indication: GASTROOESOPHAGEAL REFLUX DISEASE
     Route: 048
     Dates: start: 2010, end: 2010
  13. NAPROSYN [Concomitant]
     Active Substance: NAPROXEN
  14. METFORMIN [Concomitant]
     Active Substance: METFORMIN HYDROCHLORIDE
  15. VENTOLIN HFA [Concomitant]
     Active Substance: ALBUTEROL SULFATE
     Indication: WHEEZING
  16. OMEPRAZOLE. [Suspect]
     Active Substance: OMEPRAZOLE
     Indication: GASTROOESOPHAGEAL REFLUX DISEASE
     Route: 048
     Dates: start: 2001, end: 2010
  17. LISINOPRIL AND HYDROCHLOROTHIAZIDE [Suspect]
     Active Substance: HYDROCHLOROTHIAZIDE\LISINOPRIL
     Indication: BLOOD PRESSURE
     Dosage: 20-25 MG I TABLET DAILY
     Route: 048
  18. VENTOLIN HFA [Concomitant]
     Active Substance: ALBUTEROL SULFATE
     Indication: COUGH
  19. LEVOTHYROXINE [Concomitant]
     Active Substance: LEVOTHYROXINE
     Indication: THYROID DISORDER

REACTIONS (7)
  - Hypercholesterolaemia [Unknown]
  - Laboratory test abnormal [Unknown]
  - Glycosylated haemoglobin increased [Unknown]
  - Rhinitis allergic [Unknown]
  - Drug dose omission [Unknown]
  - Blood glucose increased [Unknown]
  - Drug ineffective [Unknown]

NARRATIVE: CASE EVENT DATE: 2009
